FAERS Safety Report 4370748-6 (Version None)
Quarter: 2004Q2

REPORT INFORMATION
  Report Type: 
  Country: None (occurrence: None)
  Receive Date: 20040527
  Receipt Date: 20040514
  Transmission Date: 20050107
  Serious: Yes (Other)
  Sender: FDA-Public Use
  Company Number: 2004-BP-03800BP

PATIENT
  Age: 45 Year
  Sex: Female

DRUGS (6)
  1. VIRAMUNE [Suspect]
     Indication: HIV INFECTION
     Dosage: SEE IMAGE
     Route: 048
     Dates: start: 20031113, end: 20040311
  2. VIRAMUNE [Suspect]
     Indication: HIV INFECTION
     Dosage: SEE IMAGE
     Route: 048
     Dates: start: 20040326
  3. DIDANOSINE (DIDANOSINE) [Concomitant]
     Indication: HIV INFECTION
     Dosage: SEE IMAGE
     Dates: start: 20031113, end: 20040311
  4. DIDANOSINE (DIDANOSINE) [Concomitant]
     Indication: HIV INFECTION
     Dosage: SEE IMAGE
     Dates: start: 20040326
  5. STAVUDINE (STAVUDINE) [Suspect]
     Indication: HIV INFECTION
     Dates: start: 20040326
  6. ZIDOVUDINE [Suspect]
     Indication: HIV INFECTION
     Dates: start: 20031113, end: 20040113

REACTIONS (4)
  - BLOOD AMYLASE INCREASED [None]
  - LIPASE INCREASED [None]
  - NEUTROPENIA [None]
  - VOMITING [None]
